FAERS Safety Report 13950813 (Version 3)
Quarter: 2017Q4

REPORT INFORMATION
  Report Type: Spontaneous
  Country: US (occurrence: US)
  Receive Date: 20170908
  Receipt Date: 20171120
  Transmission Date: 20180320
  Serious: Yes (Hospitalization)
  Sender: FDA-Public Use
  Company Number: US-JNJFOC-20170906310

PATIENT
  Age: 90 Year
  Sex: Male

DRUGS (2)
  1. PREDNISONE. [Concomitant]
     Active Substance: PREDNISONE
     Route: 065
  2. ZYTIGA [Suspect]
     Active Substance: ABIRATERONE ACETATE
     Indication: PRODUCT USED FOR UNKNOWN INDICATION
     Route: 048

REACTIONS (4)
  - Diverticulitis [Not Recovered/Not Resolved]
  - Surgery [Unknown]
  - Urinary tract infection [Not Recovered/Not Resolved]
  - Coronary artery bypass [Not Recovered/Not Resolved]

NARRATIVE: CASE EVENT DATE: 201708
